FAERS Safety Report 20778477 (Version 1)
Quarter: 2022Q2

REPORT INFORMATION
  Report Type: Spontaneous
  Country: GB (occurrence: GB)
  Receive Date: 20220503
  Receipt Date: 20220503
  Transmission Date: 20220721
  Serious: Yes (Hospitalization, Other)
  Sender: FDA-Public Use
  Company Number: GB-INSUD PHARMA-2204GB01665

PATIENT

DRUGS (9)
  1. TESTOSTERONE [Suspect]
     Active Substance: TESTOSTERONE
     Indication: Muscle building therapy
     Dosage: 400 MG ONCE PER DAY FOR 4-5 WEEKS
     Route: 030
  2. TESTOSTERONE [Suspect]
     Active Substance: TESTOSTERONE
     Dosage: WEAN
     Route: 030
  3. DIANABOL [Suspect]
     Active Substance: METHANDROSTENOLONE
     Indication: Muscle building therapy
     Route: 048
  4. METHANDROSTENOLONE [Suspect]
     Active Substance: METHANDROSTENOLONE
     Indication: Muscle building therapy
     Route: 048
  5. ANADROL [Suspect]
     Active Substance: OXYMETHOLONE
     Indication: Muscle building therapy
     Route: 048
  6. UNSPECIFIED INGREDIENT [Suspect]
     Active Substance: UNSPECIFIED INGREDIENT
     Indication: Muscle building therapy
     Route: 048
  7. UNSPECIFIED INGREDIENT [Suspect]
     Active Substance: UNSPECIFIED INGREDIENT
     Dosage: UNK
     Route: 051
  8. UNSPECIFIED INGREDIENT [Suspect]
     Active Substance: UNSPECIFIED INGREDIENT
     Dosage: UNK
     Route: 051
  9. TRENBOLONE ACETATE [Suspect]
     Active Substance: TRENBOLONE ACETATE
     Indication: Muscle building therapy
     Route: 051

REACTIONS (15)
  - Generalised tonic-clonic seizure [Recovered/Resolved]
  - Postictal state [Recovered/Resolved]
  - Respiratory tract haemorrhage [Unknown]
  - Mouth haemorrhage [Unknown]
  - Pyrexia [Unknown]
  - Acute respiratory distress syndrome [Recovered/Resolved]
  - Respiratory depression [Recovered/Resolved]
  - Metabolic acidosis [Unknown]
  - Rhabdomyolysis [Recovered/Resolved]
  - Acute kidney injury [Recovered/Resolved]
  - Hypertransaminasaemia [Recovered/Resolved]
  - Hypothalamic pituitary adrenal axis suppression [Recovering/Resolving]
  - Drug abuse [Unknown]
  - Agitation [Recovered/Resolved]
  - Vomiting [Recovered/Resolved]
